FAERS Safety Report 8983706 (Version 1)
Quarter: 2012Q4

REPORT INFORMATION
  Report Type: 
  Country: BR (occurrence: BR)
  Receive Date: 20121221
  Receipt Date: 20121221
  Transmission Date: 20130627
  Serious: Yes (Hospitalization)
  Sender: FDA-Public Use
  Company Number: BR-ABBOTT-12P-020-1024404-00

PATIENT
  Age: 31 None
  Sex: Male
  Weight: 57 kg

DRUGS (3)
  1. KALETRA [Suspect]
     Indication: HIV INFECTION
     Dosage: 2 tablets in the morning and 2 at night
     Dates: start: 201105, end: 201209
  2. ZIDOVUDINE [Concomitant]
     Indication: HIV INFECTION
     Dosage: 150Mg+300mg: 1 tab in morning/1 at night
     Route: 048
     Dates: start: 201105, end: 201210
  3. SULFAMETHOXAZOLE AND TRIMETHOPRIM [Concomitant]
     Indication: HIV INFECTION
     Dosage: 400mg+88mg
     Route: 048
     Dates: start: 201105, end: 201202

REACTIONS (15)
  - Hospitalisation [Unknown]
  - Furuncle [Recovered/Resolved]
  - Ingrown hair [Recovering/Resolving]
  - Eye swelling [Not Recovered/Not Resolved]
  - Vision blurred [Not Recovered/Not Resolved]
  - Ocular hyperaemia [Not Recovered/Not Resolved]
  - Eye pruritus [Not Recovered/Not Resolved]
  - Acne [Unknown]
  - Feeling abnormal [Unknown]
  - Thrombosis [Unknown]
  - Underweight [Unknown]
  - Amnesia [Unknown]
  - Hospitalisation [Unknown]
  - Bedridden [Unknown]
  - Tearfulness [Unknown]
